FAERS Safety Report 20856612 (Version 3)
Quarter: 2022Q4

REPORT INFORMATION
  Report Type: Spontaneous
  Country: US (occurrence: US)
  Receive Date: 20220520
  Receipt Date: 20221130
  Transmission Date: 20230113
  Serious: No
  Sender: FDA-Public Use
  Company Number: US-SA-SAC20220512000390

PATIENT
  Sex: Female
  Weight: 71 kg

DRUGS (12)
  1. DUPIXENT [Suspect]
     Active Substance: DUPILUMAB
     Indication: Dermatitis atopic
     Dosage: 300 MG, QOW
     Route: 058
     Dates: start: 202104
  2. TACROLIMUS [Concomitant]
     Active Substance: TACROLIMUS
  3. BORIC ACID [Concomitant]
     Active Substance: BORIC ACID
  4. ALBUTEROL SULFATE [Concomitant]
     Active Substance: ALBUTEROL SULFATE
     Dosage: UNK
  5. ZYRTEC [Concomitant]
     Active Substance: CETIRIZINE HYDROCHLORIDE
  6. IBUPROFEN [Concomitant]
     Active Substance: IBUPROFEN
  7. TYLENOL [Concomitant]
     Active Substance: ACETAMINOPHEN
     Dosage: 200MG
  8. BETAMETHASONE ACETATE [Concomitant]
     Active Substance: BETAMETHASONE ACETATE
     Dosage: 20MG
  9. OMEPRAZOLE [Concomitant]
     Active Substance: OMEPRAZOLE
  10. PFIZER-BIONTECH COVID-19 VACCINE [Concomitant]
     Active Substance: TOZINAMERAN
  11. CERAVE ITCH RELIEF MOISTURIZING [Concomitant]
     Active Substance: PRAMOXINE HYDROCHLORIDE
  12. HYDROXYZINE HYDROCHLORIDE [Concomitant]
     Active Substance: HYDROXYZINE HYDROCHLORIDE

REACTIONS (11)
  - Injection site pain [Unknown]
  - Eye pain [Unknown]
  - Asthenopia [Unknown]
  - Lip swelling [Unknown]
  - Anxiety [Unknown]
  - Heart rate irregular [Unknown]
  - Injection site mass [Unknown]
  - Injection site rash [Unknown]
  - Skin fissures [Unknown]
  - Pruritus [Unknown]
  - Rash [Not Recovered/Not Resolved]
